FAERS Safety Report 12361889 (Version 2)
Quarter: 2016Q4

REPORT INFORMATION
  Report Type: Spontaneous
  Country: US (occurrence: US)
  Receive Date: 20160512
  Receipt Date: 20161108
  Transmission Date: 20170207
  Serious: No
  Sender: FDA-Public Use
  Company Number: US-SA-2016SA070820

PATIENT
  Age: 48 Year
  Sex: Female
  Weight: 77.56 kg

DRUGS (19)
  1. ASPIRIN. [Concomitant]
     Active Substance: ASPIRIN
     Dosage: STRENGTH: 81 MG
  2. ATORVASTATIN [Concomitant]
     Active Substance: ATORVASTATIN
     Dosage: STRENGTH: 80 MG, 40 MG
  3. HYDRALAZINE [Concomitant]
     Active Substance: HYDRALAZINE HYDROCHLORIDE
     Dosage: STRENGTH: 25 MG
  4. FENOFIBRATE. [Concomitant]
     Active Substance: FENOFIBRATE
     Dosage: STRENGTH: 160 MG
  5. METOPROLOL. [Concomitant]
     Active Substance: METOPROLOL
     Dosage: STRENGTH: 50 MG
  6. LASIX [Concomitant]
     Active Substance: FUROSEMIDE
     Dosage: STRENGTH: 40 MG
  7. ALIROCUMAB PREFILLED PEN [Concomitant]
     Active Substance: ALIROCUMAB
     Dates: start: 20160328
  8. PLAVIX [Concomitant]
     Active Substance: CLOPIDOGREL BISULFATE
     Dosage: STRENGTH: 75 MG
  9. SPIRONOLACTONE. [Concomitant]
     Active Substance: SPIRONOLACTONE
     Dosage: STRENGTH: 25 MG
  10. GABAPENTIN. [Concomitant]
     Active Substance: GABAPENTIN
     Dosage: STRENGTH: 300 MG
  11. PRALUENT [Suspect]
     Active Substance: ALIROCUMAB
     Indication: TYPE V HYPERLIPIDAEMIA
     Route: 058
     Dates: start: 20151124, end: 20160316
  12. FLUTICASONE [Concomitant]
     Active Substance: FLUTICASONE\FLUTICASONE PROPIONATE
     Dosage: STRENGTH: 50 MCG POWDER
  13. LISINOPRIL. [Concomitant]
     Active Substance: LISINOPRIL
     Dosage: STRENGTH: 20 MG
  14. HUMALOG [Concomitant]
     Active Substance: INSULIN LISPRO
     Dosage: STRENGTH: 100 U/ML
  15. POTASSIUM CHLORIDE. [Concomitant]
     Active Substance: POTASSIUM CHLORIDE
  16. ISOSORBIDE. [Concomitant]
     Active Substance: ISOSORBIDE
     Dosage: 60 TAB 1 QD
  17. LANTUS [Concomitant]
     Active Substance: INSULIN GLARGINE
     Dosage: STRENGTH: 100U/ML
     Route: 058
  18. FUROSEMIDE. [Concomitant]
     Active Substance: FUROSEMIDE
     Dosage: STRENGTH: 40 MG
  19. IMDUR [Concomitant]
     Active Substance: ISOSORBIDE MONONITRATE
     Dosage: STRENGTH: 60 MG TABLET, EXTENDED RELEASE 1 TAB(S) ONCE A DAY (IN THE MORNING

REACTIONS (5)
  - Skin burning sensation [Unknown]
  - Nausea [Unknown]
  - Influenza like illness [Recovered/Resolved]
  - Vomiting [Unknown]
  - Erythema [Unknown]

NARRATIVE: CASE EVENT DATE: 20160316
